FAERS Safety Report 7735353-X (Version None)
Quarter: 2011Q3

REPORT INFORMATION
  Report Type: 
  Country: None (occurrence: None)
  Receive Date: 20110907
  Receipt Date: 20110831
  Transmission Date: 20111222
  Serious: Yes (Other)
  Sender: FDA-Public Use
  Company Number: US-SANOFI-AVENTIS-2011SA056264

PATIENT
  Sex: Female

DRUGS (1)
  1. LANTUS [Suspect]
     Route: 065

REACTIONS (1)
  - GASTRIC OPERATION [None]
